FAERS Safety Report 13065425 (Version 2)
Quarter: 2017Q2

REPORT INFORMATION
  Report Type: Report from Study
  Country: US (occurrence: US)
  Receive Date: 20161227
  Receipt Date: 20170421
  Transmission Date: 20170830
  Serious: Yes (Hospitalization)
  Sender: FDA-Public Use
  Company Number: US-PFIZER INC-2016533989

PATIENT
  Age: 73 Year
  Sex: Female
  Weight: 70 kg

DRUGS (9)
  1. FULVESTRANT [Suspect]
     Active Substance: FULVESTRANT
     Indication: BREAST CANCER METASTATIC
     Dosage: 500 MG, ON C1 DAYS 1, 15; ON C2 DAY 1; ON SUBSEQUENT CYCLE DAY 28 (+/- 3 DAYS)
     Route: 030
     Dates: start: 20161031
  2. DECADRON [Concomitant]
     Active Substance: DEXAMETHASONE
     Indication: STOMATITIS
     Dosage: 0.5 MG/ 5ML
     Route: 048
     Dates: start: 20161031
  3. PF-05212384 [Suspect]
     Active Substance: GEDATOLISIB
     Indication: BREAST CANCER METASTATIC
     Dosage: 180 MG, CYCLIC (ON DAY 1, 8, 15 AND 22 OF EACH 28 DAYS CYCLE)
     Route: 042
     Dates: start: 20161031
  4. VITAMIN D3 [Concomitant]
     Active Substance: CHOLECALCIFEROL
     Indication: SUPPLEMENTATION THERAPY
     Dosage: UNK
     Dates: start: 20161031
  5. METOPROLOL TARTRATE. [Concomitant]
     Active Substance: METOPROLOL TARTRATE
     Indication: AORTIC ARTERIOSCLEROSIS
     Dosage: 100 MG, 1X/DAY
     Dates: start: 20160421
  6. CALCIUM [Concomitant]
     Active Substance: CALCIUM
     Indication: SUPPLEMENTATION THERAPY
     Dosage: UNK
     Dates: start: 20161031
  7. PALBOCICLIB [Suspect]
     Active Substance: PALBOCICLIB
     Indication: BREAST CANCER METASTATIC
     Dosage: 125 MG, CYCLIC (ONCE DAILY FOR 21 DAYS ON/ 7 DAYS OFF FOR EACH 28 DAYS CYCLE)
     Route: 048
     Dates: start: 20161031, end: 20161111
  8. LOVENOX [Concomitant]
     Active Substance: ENOXAPARIN SODIUM
     Indication: DEEP VEIN THROMBOSIS
     Dosage: 100 MG/ML, UNK
     Dates: start: 20160227
  9. ZANTAC [Concomitant]
     Active Substance: RANITIDINE HYDROCHLORIDE
     Indication: REFLUX GASTRITIS
     Dosage: 300 MG, UNK
     Dates: start: 20161031

REACTIONS (1)
  - Pneumonia [Recovered/Resolved]

NARRATIVE: CASE EVENT DATE: 20161111
